FAERS Safety Report 5192447-3 (Version None)
Quarter: 2006Q4

REPORT INFORMATION
  Report Type: 
  Country: None (occurrence: None)
  Receive Date: 20061220
  Receipt Date: 20061209
  Transmission Date: 20070319
  Serious: Yes (Other)
  Sender: FDA-Public Use
  Company Number: 2006151748

PATIENT
  Age: 36 Year
  Sex: Female
  Weight: 56.6996 kg

DRUGS (3)
  1. XANAX [Suspect]
     Indication: PANIC ATTACK
     Dates: start: 20061101
  2. CHANTIX [Suspect]
     Indication: EX-SMOKER
     Dosage: 0.5 MG (0.5 MG, 1 IN 1 D), ORAL
     Route: 048
     Dates: start: 20061101
  3. VITAMIN B COMPLEX CAP [Concomitant]

REACTIONS (13)
  - ANXIETY [None]
  - CRYING [None]
  - DISEASE RECURRENCE [None]
  - FEELING ABNORMAL [None]
  - FOOD CRAVING [None]
  - LOSS OF EMPLOYMENT [None]
  - NAUSEA [None]
  - NERVOUSNESS [None]
  - PARANOIA [None]
  - POLLAKIURIA [None]
  - STRESS [None]
  - THINKING ABNORMAL [None]
  - URINARY INCONTINENCE [None]
